FAERS Safety Report 5679360-X (Version None)
Quarter: 2008Q1

REPORT INFORMATION
  Report Type: 
  Country: None (occurrence: None)
  Receive Date: 20080325
  Receipt Date: 20080314
  Transmission Date: 20080703
  Serious: Yes (Hospitalization)
  Sender: FDA-Public Use
  Company Number: US-ROCHE-521962

PATIENT
  Age: 60 Year
  Sex: Male
  Weight: 59.5 kg

DRUGS (20)
  1. PEG-INTERFERON ALFA 2A (RO 25-8310) [Suspect]
     Indication: HEPATITIS C
     Route: 058
     Dates: start: 20070615, end: 20070715
  2. RIBAVIRIN [Suspect]
     Indication: HEPATITIS C
     Route: 048
     Dates: start: 20070615, end: 20070717
  3. BLINDED VX-950 [Suspect]
     Indication: HEPATITIS C
     Route: 048
     Dates: start: 20070615, end: 20070717
  4. ACTOS [Concomitant]
     Route: 048
  5. ZETIA [Concomitant]
     Route: 048
  6. GEMFIBROZIL [Concomitant]
     Route: 048
  7. BENICAR [Concomitant]
     Route: 048
  8. PAXIL [Concomitant]
     Route: 048
  9. FLOMAX [Concomitant]
     Route: 048
  10. COMPAZINE [Concomitant]
  11. NORVASC [Concomitant]
  12. VICODIN ES [Concomitant]
     Indication: PAIN
  13. BETHANECHOL [Concomitant]
  14. UNSPECIFIED DRUG [Concomitant]
     Dosage: REPORTED AS: CITRA.
  15. CIPRO [Concomitant]
     Indication: EAR INFECTION
     Route: 048
  16. MEGACE [Concomitant]
     Route: 048
  17. COENZYME Q10 [Concomitant]
  18. DANDELION ROOT [Concomitant]
  19. GOLD SEAL ANTISEPTIC POWDER [Concomitant]
  20. FISH OIL [Concomitant]

REACTIONS (4)
  - ANAEMIA [None]
  - DEHYDRATION [None]
  - METABOLIC ACIDOSIS [None]
  - NAUSEA [None]
